FAERS Safety Report 16853473 (Version 1)
Quarter: 2019Q3

REPORT INFORMATION
  Report Type: Report from Study
  Country: None (occurrence: MX)
  Receive Date: 20190925
  Receipt Date: 20190925
  Transmission Date: 20191005
  Serious: Yes (Death)
  Sender: FDA-Public Use
  Company Number: MX-ABBVIE-19P-107-2939241-00

PATIENT
  Age: 79 Year
  Sex: Female

DRUGS (3)
  1. ULSEN [Concomitant]
     Active Substance: OMEPRAZOLE
     Indication: PRODUCT USED FOR UNKNOWN INDICATION
     Route: 048
  2. LOSARTAN. [Concomitant]
     Active Substance: LOSARTAN
     Indication: HYPERTENSION
     Route: 048
  3. CREON [Suspect]
     Active Substance: PANCRELIPASE AMYLASE\PANCRELIPASE LIPASE\PANCRELIPASE PROTEASE
     Indication: PANCREATIC CARCINOMA
     Dosage: 2 WITH EVERY MEAL; DAILY DOSE: 6 CAPSULES
     Route: 048
     Dates: start: 201601, end: 20190820

REACTIONS (2)
  - Respiratory failure [Fatal]
  - Dysphagia [Unknown]

NARRATIVE: CASE EVENT DATE: 20190827
